FAERS Safety Report 8311512 (Version 6)
Quarter: 2015Q4

REPORT INFORMATION
  Report Type: Spontaneous
  Country: US (occurrence: US)
  Receive Date: 20111227
  Receipt Date: 20151002
  Transmission Date: 20160305
  Serious: Yes (Hospitalization)
  Sender: FDA-Public Use
  Company Number: US-BAYER-2011-122698

PATIENT
  Age: 35 Year
  Sex: Female
  Weight: 61 kg

DRUGS (5)
  1. ALEVE [Concomitant]
     Active Substance: NAPROXEN SODIUM
  2. EXCEDRIN MIGRAINE [Concomitant]
     Active Substance: ACETAMINOPHEN\ASPIRIN\CAFFEINE
  3. YASMIN [Suspect]
     Active Substance: DROSPIRENONE\ETHINYL ESTRADIOL
     Indication: CONTRACEPTION
     Dosage: UNK
     Dates: start: 200605, end: 200611
  4. TRAMADOL. [Concomitant]
     Active Substance: TRAMADOL
     Dosage: 50 MG, PRN
  5. NAPROXEN. [Concomitant]
     Active Substance: NAPROXEN
     Indication: HEADACHE

REACTIONS (17)
  - Memory impairment [None]
  - Language disorder [None]
  - Reading disorder [None]
  - Cerebrovascular accident [None]
  - Pain [None]
  - Anger [None]
  - Hypoaesthesia [None]
  - Vomiting [None]
  - Cerebral haemorrhage [Recovering/Resolving]
  - Fear of disease [None]
  - Urinary tract infection [None]
  - Malaise [None]
  - Cerebral venous thrombosis [None]
  - Encephalopathy [None]
  - Hemianopia [None]
  - Frustration [None]
  - Migraine [None]

NARRATIVE: CASE EVENT DATE: 200611
